FAERS Safety Report 9498071 (Version 3)
Quarter: 2014Q4

REPORT INFORMATION
  Report Type: Spontaneous
  Country: US (occurrence: US)
  Receive Date: 20130904
  Receipt Date: 20141017
  Transmission Date: 20150529
  Serious: Yes (Hospitalization)
  Sender: FDA-Public Use
  Company Number: US-BAYER-2013-105688

PATIENT
  Age: 30 Year
  Sex: Female
  Weight: 65.76 kg

DRUGS (4)
  1. MIRENA [Suspect]
     Active Substance: LEVONORGESTREL
     Indication: CONTRACEPTION
     Dosage: 20 MCG/24HR, CONT
     Route: 015
     Dates: start: 20090224, end: 20110922
  2. PERCOCET [Concomitant]
     Active Substance: ACETAMINOPHEN\OXYCODONE HYDROCHLORIDE
  3. IBUPROFEN. [Concomitant]
     Active Substance: IBUPROFEN
  4. MIRENA [Suspect]
     Active Substance: LEVONORGESTREL
     Indication: CONTRACEPTION
     Dosage: 20 MCG/24HR, CONT
     Route: 015
     Dates: start: 20110921

REACTIONS (9)
  - Injury [None]
  - Device dislocation [None]
  - Depression [None]
  - Pregnancy with contraceptive device [None]
  - Uterine perforation [None]
  - Abdominal pain lower [None]
  - Drug ineffective [None]
  - Medical device pain [None]
  - Infection [None]

NARRATIVE: CASE EVENT DATE: 201108
